FAERS Safety Report 4659732-2 (Version None)
Quarter: 2005Q2

REPORT INFORMATION
  Report Type: 
  Country: None (occurrence: None)
  Receive Date: 20050420
  Receipt Date: 20050317
  Transmission Date: 20051028
  Serious: No
  Sender: FDA-Public Use
  Company Number: PHEH2005US03289

PATIENT
  Age: 74 Year
  Sex: Female

DRUGS (1)
  1. ENABLEX [Suspect]
     Indication: POLLAKIURIA
     Dosage: 7.5 MG, QD, UNK
     Route: 048
     Dates: start: 20050304, end: 20050315

REACTIONS (1)
  - PAIN IN EXTREMITY [None]
